FAERS Safety Report 17473139 (Version 1)
Quarter: 2020Q1

REPORT INFORMATION
  Report Type: Report from Study
  Country: MX (occurrence: MX)
  Receive Date: 20200228
  Receipt Date: 20200228
  Transmission Date: 20200409
  Serious: Yes (Other)
  Sender: FDA-Public Use
  Company Number: NVSC2020MX052072

PATIENT
  Age: 80 Year
  Sex: Male
  Weight: 69 kg

DRUGS (1)
  1. CO-DIOVAN [Suspect]
     Active Substance: HYDROCHLOROTHIAZIDE\VALSARTAN
     Indication: HYPERTENSION
     Dosage: 1 DF (16/12.5 MG), QD (4 YEARS AGO)
     Route: 048

REACTIONS (3)
  - Visual impairment [Unknown]
  - Conjunctivitis [Unknown]
  - Cataract [Unknown]

NARRATIVE: CASE EVENT DATE: 201908
